FAERS Safety Report 8177333-9 (Version None)
Quarter: 2012Q1

REPORT INFORMATION
  Report Type: 
  Country: None (occurrence: None)
  Receive Date: 20120301
  Receipt Date: 20120227
  Transmission Date: 20120608
  Serious: Yes (Other)
  Sender: FDA-Public Use
  Company Number: AU-ROCHE-1043620

PATIENT
  Age: 40 Year

DRUGS (5)
  1. DOXORUBICIN HCL [Concomitant]
     Indication: BREAST CANCER METASTATIC
  2. HERCEPTIN [Suspect]
     Indication: BREAST CANCER METASTATIC
  3. XELODA [Suspect]
     Indication: BREAST CANCER METASTATIC
  4. LAPATINIB [Concomitant]
     Indication: BREAST CANCER METASTATIC
  5. TAXANE NOS [Concomitant]
     Indication: BREAST CANCER METASTATIC

REACTIONS (2)
  - EJECTION FRACTION DECREASED [None]
  - DISEASE PROGRESSION [None]
